FAERS Safety Report 9941414 (Version 2)
Quarter: 2014Q1

REPORT INFORMATION
  Report Type: Spontaneous
  Country: US (occurrence: US)
  Receive Date: 20140303
  Receipt Date: 20140303
  Transmission Date: 20141002
  Serious: Yes (Other)
  Sender: FDA-Public Use
  Company Number: US-AMGEN-USASP2013090405

PATIENT
  Age: 65 Year
  Sex: Male

DRUGS (5)
  1. ENBREL [Suspect]
     Indication: PSORIASIS
     Dosage: 50 MG, QWK
     Route: 058
     Dates: start: 201310, end: 20131213
  2. LEXAPRO                            /01588501/ [Concomitant]
     Dosage: UNK
  3. VITAMIN B 12 [Concomitant]
     Dosage: UNK
  4. ASA [Concomitant]
     Dosage: UNK
  5. MVI                                /07504101/ [Concomitant]
     Dosage: UNK

REACTIONS (1)
  - Thrombosis [Unknown]
